FAERS Safety Report 14430627 (Version 1)
Quarter: 2018Q1

REPORT INFORMATION
  Report Type: Spontaneous
  Country: US (occurrence: US)
  Receive Date: 20180123
  Receipt Date: 20180123
  Transmission Date: 20180509
  Serious: Yes (Other)
  Sender: FDA-Public Use
  Company Number: None

PATIENT
  Age: 36 Year
  Sex: Female

DRUGS (1)
  1. ELINEST [Suspect]
     Active Substance: ETHINYL ESTRADIOL\NORGESTREL
     Indication: ORAL CONTRACEPTION
     Route: 048

REACTIONS (4)
  - Migraine [None]
  - Hyperhidrosis [None]
  - Presyncope [None]
  - Therapy cessation [None]

NARRATIVE: CASE EVENT DATE: 20170606
